FAERS Safety Report 8993099 (Version 3)
Quarter: 2013Q3

REPORT INFORMATION
  Report Type: Report from Study
  Country: US (occurrence: US)
  Receive Date: 20130102
  Receipt Date: 20130722
  Transmission Date: 20140515
  Serious: Yes (Hospitalization, Other)
  Sender: FDA-Public Use
  Company Number: US-ROCHE-1054384

PATIENT
  Age: 67 Year
  Sex: Female
  Weight: 54.88 kg

DRUGS (4)
  1. BEVACIZUMAB [Suspect]
     Indication: OVARIAN CANCER
     Dosage: BEGINING WITH CYCLE 2, LAST DOSE ON 14/FEB/2012, LAST DOSE ON 23/APR/2013,827 MG IN THE 22 COURSE
     Route: 042
     Dates: start: 20111025
  2. BEVACIZUMAB [Suspect]
     Dosage: TOTAL DOSE OF 872 MG IN COURSE 13. LAST DATE OF ADMINISTRATION ON 11/SEP/2012
     Route: 042
  3. CARBOPLATIN [Suspect]
     Indication: OVARIAN CANCER
     Dosage: DOSE: AUC 6, LAST DOSE ON 14/FEB/2012
     Route: 033
     Dates: start: 20111025
  4. PACLITAXEL [Suspect]
     Indication: OVARIAN CANCER
     Dosage: LAST DOSE ON 28/FEB/2012
     Route: 042
     Dates: start: 20111025

REACTIONS (16)
  - Syncope [Not Recovered/Not Resolved]
  - Hyponatraemia [Not Recovered/Not Resolved]
  - Wound infection [Not Recovered/Not Resolved]
  - Abdominal pain [Recovering/Resolving]
  - Decreased appetite [Recovered/Resolved]
  - Hypocalcaemia [Unknown]
  - Hyponatraemia [Unknown]
  - Fatigue [Unknown]
  - Abdominal distension [Unknown]
  - Diarrhoea [Recovering/Resolving]
  - Oesophagitis [Unknown]
  - Nausea [Recovering/Resolving]
  - Vomiting [Recovered/Resolved]
  - Small intestinal obstruction [Recovered/Resolved]
  - Hypertension [Recovered/Resolved]
  - Dehydration [Recovered/Resolved]
